FAERS Safety Report 11588345 (Version 1)
Quarter: 2015Q4

REPORT INFORMATION
  Report Type: Report from Study
  Country: US (occurrence: US)
  Receive Date: 20151002
  Receipt Date: 20151002
  Transmission Date: 20160304
  Serious: Yes (Hospitalization, Other)
  Sender: FDA-Public Use
  Company Number: US-AMGEN-USASL2015101654

PATIENT
  Age: 47 Year
  Sex: Male

DRUGS (1)
  1. ENBREL [Suspect]
     Active Substance: ETANERCEPT
     Indication: PSORIATIC ARTHROPATHY
     Dosage: 50 MG, QWK
     Route: 065
     Dates: start: 20150610

REACTIONS (5)
  - Skin infection [Unknown]
  - Soft tissue infection [Unknown]
  - Dermatitis acneiform [Unknown]
  - Sepsis [Unknown]
  - Rash pruritic [Unknown]

NARRATIVE: CASE EVENT DATE: 2015
